FAERS Safety Report 14976533 (Version 1)
Quarter: 2018Q2

REPORT INFORMATION
  Report Type: Spontaneous
  Country: PK (occurrence: PK)
  Receive Date: 20180605
  Receipt Date: 20180605
  Transmission Date: 20180711
  Serious: Yes (Death, Life-Threatening, Hospitalization)
  Sender: FDA-Public Use
  Company Number: PHHY2018PK015027

PATIENT
  Age: 75 Year
  Sex: Female

DRUGS (5)
  1. RIVAROXABAN [Interacting]
     Active Substance: RIVAROXABAN
     Dosage: 10 MG, BID
     Route: 048
  2. RIVAROXABAN [Interacting]
     Active Substance: RIVAROXABAN
     Indication: ATRIAL FIBRILLATION
     Dosage: 10 MG, QD
     Route: 048
  3. LEVODOPA/CARBIDOPA [Concomitant]
     Active Substance: CARBIDOPA\LEVODOPA
     Indication: PARKINSON^S DISEASE
     Route: 065
  4. THYROXIN [Concomitant]
     Active Substance: LEVOTHYROXINE
     Indication: HYPOTHYROIDISM
     Route: 065
  5. RIFAMPICIN [Suspect]
     Active Substance: RIFAMPIN
     Indication: PRODUCT USED FOR UNKNOWN INDICATION
     Route: 065

REACTIONS (17)
  - Tachycardia [Fatal]
  - Drug interaction [Unknown]
  - Urinary tract infection [Unknown]
  - Productive cough [Unknown]
  - Orthostatic hypotension [Unknown]
  - Dyspepsia [Unknown]
  - Respiratory tract infection [Unknown]
  - Pyrexia [Unknown]
  - Pneumonia [Unknown]
  - Pulmonary embolism [Fatal]
  - Autonomic nervous system imbalance [Unknown]
  - Hypoxia [Fatal]
  - Thrombosis [Fatal]
  - Hyperhidrosis [Unknown]
  - Dizziness [Unknown]
  - Multiple system atrophy [Unknown]
  - Sepsis [Unknown]
